FAERS Safety Report 8571761-5 (Version None)
Quarter: 2012Q3

REPORT INFORMATION
  Report Type: 
  Country: None (occurrence: None)
  Receive Date: 20120806
  Receipt Date: 20120803
  Transmission Date: 20120928
  Serious: Yes (Disabling)
  Sender: FDA-Public Use
  Company Number: PHFR2012GB003941

PATIENT
  Age: 75 Year
  Sex: Female
  Weight: 110 kg

DRUGS (7)
  1. LEVOTHYROXINE SODIUM [Concomitant]
     Indication: HYPOTHYROIDISM
     Dosage: 75 UG, QD
     Route: 048
     Dates: start: 20040101
  2. SULPIRIDE [Concomitant]
     Indication: SCHIZOPHRENIA
     Dosage: 200 MG, QD
     Route: 048
     Dates: start: 20040101
  3. LEVETIRACETAM [Interacting]
     Indication: EPILEPSY
     Dosage: 1.25 MG, BID
     Route: 048
  4. LEVETIRACETAM [Interacting]
     Dosage: 1.5 MG, BID
     Route: 048
     Dates: start: 20120101
  5. SIMVASTATIN [Concomitant]
     Dosage: 40 MG, QD
     Route: 048
     Dates: start: 20110101
  6. CARBAMAZEPINE [Suspect]
     Indication: EPILEPSY
     Dosage: 200 MG, BID
     Route: 048
     Dates: start: 20050101
  7. LEVETIRACETAM [Interacting]
     Dosage: 1.25 MG, BID
     Route: 048
     Dates: start: 20120101

REACTIONS (2)
  - DRUG INTERACTION [None]
  - FATIGUE [None]
